FAERS Safety Report 17883046 (Version 1)
Quarter: 2020Q2

REPORT INFORMATION
  Report Type: Spontaneous
  Country: US (occurrence: US)
  Receive Date: 20200611
  Receipt Date: 20200611
  Transmission Date: 20200714
  Serious: Yes (Other)
  Sender: FDA-Public Use
  Company Number: US-AMGEN-USASP2020088389

PATIENT

DRUGS (13)
  1. IRON [Concomitant]
     Active Substance: IRON
     Dosage: UNK
  2. PROCRIT [Suspect]
     Active Substance: ERYTHROPOIETIN
     Dosage: UNK UNK, Q4WK
     Route: 042
     Dates: start: 201602
  3. METFORMIN [Concomitant]
     Active Substance: METFORMIN HYDROCHLORIDE
     Indication: TYPE 2 DIABETES MELLITUS
     Dosage: UNK
     Dates: start: 201609
  4. JANUVIA [Concomitant]
     Active Substance: SITAGLIPTIN PHOSPHATE
     Indication: TYPE 2 DIABETES MELLITUS
     Dosage: UNK
     Dates: end: 201807
  5. INSULIN [Concomitant]
     Active Substance: INSULIN NOS
     Indication: TYPE 2 DIABETES MELLITUS
     Dosage: UNK
  6. PROCRIT [Suspect]
     Active Substance: ERYTHROPOIETIN
     Indication: DIABETIC NEPHROPATHY
     Dosage: QH FOR 04 WEEKS
     Route: 042
     Dates: start: 201602
  7. LANTUS [Concomitant]
     Active Substance: INSULIN GLARGINE
     Dosage: LOWER DOSE
     Dates: end: 201702
  8. GLIMEPIRIDE. [Concomitant]
     Active Substance: GLIMEPIRIDE
     Indication: TYPE 2 DIABETES MELLITUS
     Dosage: 1 MILLIGRAM, BID (BEFORE BREAKFAST AND BEFORE DINNER)
     Dates: start: 2018
  9. VITAMIN D [COLECALCIFEROL] [Concomitant]
     Active Substance: CHOLECALCIFEROL
     Dosage: UNK
  10. CALCIUM [Concomitant]
     Active Substance: CALCIUM
     Dosage: UNK
  11. LANTUS [Concomitant]
     Active Substance: INSULIN GLARGINE
     Indication: TYPE 2 DIABETES MELLITUS
     Dosage: UNK
     Dates: start: 201609
  12. PROCRIT [Suspect]
     Active Substance: ERYTHROPOIETIN
     Dosage: UNK UNK, Q2WK
     Route: 042
     Dates: start: 201602
  13. PROCRIT [Suspect]
     Active Substance: ERYTHROPOIETIN
     Indication: NEPHROGENIC ANAEMIA
     Dosage: QH FOR 01 WEEK FOR 04 WEEKS
     Route: 042
     Dates: start: 201602

REACTIONS (7)
  - Atrial fibrillation [Unknown]
  - Blood glucose increased [Unknown]
  - Neuropathy peripheral [Unknown]
  - Bursitis [Unknown]
  - Autonomic nervous system imbalance [Unknown]
  - Hypertension [Not Recovered/Not Resolved]
  - Hypotension [Unknown]

NARRATIVE: CASE EVENT DATE: 2018
